FAERS Safety Report 6933415-8 (Version None)
Quarter: 2010Q3

REPORT INFORMATION
  Report Type: 
  Country: None (occurrence: None)
  Receive Date: 20100820
  Receipt Date: 20100809
  Transmission Date: 20110219
  Serious: Yes (Hospitalization, Other)
  Sender: FDA-Public Use
  Company Number: US-ELI_LILLY_AND_COMPANY-US200909000315

PATIENT
  Sex: Female

DRUGS (34)
  1. FORTEO [Suspect]
     Indication: OSTEOPOROSIS POSTMENOPAUSAL
     Dosage: 20 UG, DAILY (1/D)
     Dates: start: 20090810
  2. FORTEO [Suspect]
     Dosage: 20 UG, DAILY (1/D)
  3. GLYBURIDE [Concomitant]
     Indication: DIABETES MELLITUS
     Dosage: 10 MG, 2/D
  4. METFORMIN HCL [Concomitant]
     Indication: DIABETES MELLITUS
     Dosage: 1000 MG, 2/D
  5. LANTUS [Concomitant]
     Indication: DIABETES MELLITUS
     Dosage: SLIDING SCALE, 18 UNITS IF NORMAL, 50 UNITS IF HIGH
  6. OXYGEN [Concomitant]
     Dosage: 2 LITER, EACH EVENING
  7. ULTRAM [Concomitant]
     Dosage: 50 MG, 3/D
  8. IBUPROFEN [Concomitant]
     Dosage: 800 MG, 3/D
  9. SKELAXIN [Concomitant]
     Dosage: 400 MG, 2/D
  10. CYCLOBENZAPRINE [Concomitant]
     Indication: MUSCLE SPASMS
     Dosage: 10 MG, EACH EVENING
  11. LOVASTATIN [Concomitant]
     Indication: BLOOD CHOLESTEROL INCREASED
     Dosage: 400 MG, DAILY (1/D)
  12. NEXIUM [Concomitant]
     Dosage: 80 MG, EACH MORNING
  13. SINGULAIR [Concomitant]
     Dosage: 10 MG, EACH EVENING
  14. SEREVENT [Concomitant]
     Dosage: 13 UG, 2/D
  15. PULMICORT [Concomitant]
     Dosage: 400 UG, 2/D
  16. ALBUTEROL [Concomitant]
     Dosage: 90 UG, 2/D
  17. ALBUTEROL [Concomitant]
     Dosage: UNK, AS NEEDED
  18. ARTIFICIAL TEARS /00445101/ [Concomitant]
  19. RHINOCORT [Concomitant]
     Dosage: 2 SPRAYS
  20. ZYRTEC [Concomitant]
     Dosage: 10 MG, EACH EVENING
  21. MSM WITH GLUCOSAMINE /05460301/ [Concomitant]
     Dosage: 500 MG, 3/D
  22. ESTROVEN /02150801/ [Concomitant]
     Dosage: 1 D/F, EACH MORNING
  23. BENADRYL [Concomitant]
     Dosage: 25 MG, EACH EVENING
  24. HERBAL PREPARATION [Concomitant]
     Dosage: 1000 MG, 2/D
  25. CENTRUM SILVER [Concomitant]
  26. CALCIUM CARBONATE W/VITAMIN D /00944201/ [Concomitant]
     Dosage: 630 MG, EACH EVENING
  27. ACIDOPHILUS [Concomitant]
     Dosage: 34 MG, 3/D
  28. HERBAL OIL NOS [Concomitant]
     Dosage: 1000 MG, 2/D
  29. PROGESTERONE [Concomitant]
     Dosage: 0.25 D/F, 2/D
  30. BACTRIM [Concomitant]
     Indication: HUMAN SEMINAL PLASMA HYPERSENSITIVITY
     Dosage: UNK, AS NEEDED
  31. PREVACID [Concomitant]
     Dosage: 30 MG, DAILY (1/D)
  32. ASMANEX TWISTHALER [Concomitant]
     Dosage: 220 U, 2/D
  33. COLACE [Concomitant]
  34. COUMADIN [Concomitant]

REACTIONS (14)
  - AORTIC STENOSIS [None]
  - AORTIC VALVE CALCIFICATION [None]
  - BLOOD CALCIUM DECREASED [None]
  - CARDIAC STRESS TEST [None]
  - CATHETERISATION CARDIAC [None]
  - EXERCISE TOLERANCE DECREASED [None]
  - FATIGUE [None]
  - HAEMATURIA [None]
  - HAEMORRHAGE [None]
  - HEART VALVE REPLACEMENT [None]
  - INJECTION SITE HAEMATOMA [None]
  - IRON DEFICIENCY ANAEMIA [None]
  - MUSCLE SPASMS [None]
  - PAIN IN EXTREMITY [None]
